FAERS Safety Report 17659751 (Version 1)
Quarter: 2020Q2

REPORT INFORMATION
  Report Type: Spontaneous
  Country: US (occurrence: US)
  Receive Date: 20200413
  Receipt Date: 20200413
  Transmission Date: 20200713
  Serious: No
  Sender: FDA-Public Use
  Company Number: US-BION-005469

PATIENT
  Age: 48 Year
  Sex: Male
  Weight: 97 kg

DRUGS (1)
  1. ALEVE [Suspect]
     Active Substance: NAPROXEN SODIUM
     Indication: PAIN
     Dosage: 3 DF QD?3 LIQUID GELS/DAY?ALSO RECEIVED TILL 20-MAR-2019
     Route: 048
     Dates: end: 20160906

REACTIONS (3)
  - Incorrect product administration duration [Not Recovered/Not Resolved]
  - Incorrect dosage administered [Not Recovered/Not Resolved]
  - Drug ineffective [Not Recovered/Not Resolved]
